FAERS Safety Report 14780343 (Version 1)
Quarter: 2018Q2

REPORT INFORMATION
  Report Type: Spontaneous
  Country: US (occurrence: US)
  Receive Date: 20180419
  Receipt Date: 20180419
  Transmission Date: 20180711
  Serious: No
  Sender: FDA-Public Use
  Company Number: US-BAUSCH-BL-2017-007477

PATIENT
  Age: 76 Year
  Sex: Male
  Weight: 118.04 kg

DRUGS (1)
  1. CICLOPIROX SHAMPOO [Suspect]
     Active Substance: CICLOPIROX
     Indication: PSORIASIS
     Route: 065
     Dates: start: 20170316, end: 20170316

REACTIONS (6)
  - Accidental exposure to product [Unknown]
  - Rash erythematous [Not Recovered/Not Resolved]
  - Pruritus [Not Recovered/Not Resolved]
  - Herpes zoster [Unknown]
  - Skin disorder [Recovering/Resolving]
  - Off label use [Unknown]

NARRATIVE: CASE EVENT DATE: 20170316
